FAERS Safety Report 9386974 (Version 1)
Quarter: 2013Q3

REPORT INFORMATION
  Report Type: Spontaneous
  Country: US (occurrence: None)
  Receive Date: 20130703
  Receipt Date: 20130703
  Transmission Date: 20140515
  Serious: Yes (Life-Threatening, Hospitalization)
  Sender: FDA-Public Use
  Company Number: None

PATIENT
  Age: 28 Year
  Sex: Female

DRUGS (4)
  1. PENTASA (MESALAZINE) [Suspect]
     Dosage: STANDARD  RECOMMENDED DOSE AT THE TIME?16 PILLS A DAY?BY MOUTH
     Route: 048
  2. MULTIVITAMINS [Concomitant]
  3. HERBAL TEAS [Concomitant]
  4. ANTI-INFLAMMATORY TEAS [Concomitant]

REACTIONS (7)
  - Arthritis [None]
  - Eosinophilic pneumonia [None]
  - Asthenia [None]
  - Weight decreased [None]
  - Colitis [None]
  - Aphagia [None]
  - Impaired work ability [None]
